FAERS Safety Report 8312951-6 (Version None)
Quarter: 2012Q2

REPORT INFORMATION
  Report Type: 
  Country: None (occurrence: None)
  Receive Date: 20120426
  Receipt Date: 20120420
  Transmission Date: 20120825
  Serious: Yes (Other)
  Sender: FDA-Public Use
  Company Number: IN-US-EMD SERONO, INC.-7067036

PATIENT
  Sex: Female
  Weight: 56 kg

DRUGS (5)
  1. ATEN [Concomitant]
     Indication: HYPERTENSION
     Route: 048
     Dates: start: 20021224
  2. SAFINAMIDE [Suspect]
     Indication: PARKINSON'S DISEASE
     Route: 048
     Dates: start: 20110608, end: 20110621
  3. SAFINAMIDE [Suspect]
     Route: 048
     Dates: start: 20110622, end: 20110625
  4. SAFINAMIDE [Suspect]
     Route: 048
     Dates: start: 20090615, end: 20110607
  5. PRAMIPEXOLE DIHYDROCHLORIDE [Concomitant]
     Indication: PARKINSON'S DISEASE
     Route: 048
     Dates: start: 20080216

REACTIONS (1)
  - MACULAR SCAR [None]
